FAERS Safety Report 4268803-4 (Version None)
Quarter: 2004Q1

REPORT INFORMATION
  Report Type: 
  Country: None (occurrence: None)
  Receive Date: 20040112
  Receipt Date: 20040112
  Transmission Date: 20041129
  Serious: Yes (Hospitalization)
  Sender: FDA-Public Use
  Company Number: None

PATIENT
  Age: 61 Year
  Sex: Male
  Weight: 106 kg

DRUGS (4)
  1. CARBOPLATIN [Suspect]
     Indication: MANTLE CELL LYMPHOMA
     Dosage: 655 MG IV
     Route: 042
     Dates: start: 20031215
  2. COUMADIN [Concomitant]
  3. VIOXX [Concomitant]
  4. LIPITOR [Concomitant]

REACTIONS (2)
  - DIVERTICULUM [None]
  - RECTAL HAEMORRHAGE [None]
